FAERS Safety Report 20373619 (Version 4)
Quarter: 2022Q1

REPORT INFORMATION
  Report Type: Spontaneous
  Country: IN (occurrence: IN)
  Receive Date: 20220125
  Receipt Date: 20220323
  Transmission Date: 20220423
  Serious: Yes (Other)
  Sender: FDA-Public Use
  Company Number: IN-LUPIN LIMITED-2022-00735

PATIENT

DRUGS (4)
  1. AMLODIPINE\TELMISARTAN [Suspect]
     Active Substance: AMLODIPINE\TELMISARTAN
     Indication: Blood pressure abnormal
     Dosage: UNK
     Route: 048
  2. NEXITO PLUS [Concomitant]
     Indication: Blood pressure abnormal
     Dosage: UNK
     Route: 065
  3. THYROXINE [Concomitant]
     Active Substance: LEVOTHYROXINE
     Indication: Thyroid disorder
     Dosage: UNK
     Route: 065
  4. CILNIDIPINE [Concomitant]
     Active Substance: CILNIDIPINE
     Indication: Blood pressure abnormal
     Dosage: 10 MILLIGRAM
     Route: 065

REACTIONS (2)
  - Pain in extremity [Recovered/Resolved]
  - Blood pressure increased [Recovered/Resolved]
